FAERS Safety Report 7786527-3 (Version None)
Quarter: 2011Q3

REPORT INFORMATION
  Report Type: 
  Country: None (occurrence: None)
  Receive Date: 20110929
  Receipt Date: 20110825
  Transmission Date: 20111222
  Serious: Yes (Hospitalization)
  Sender: FDA-Public Use
  Company Number: US-GLAXOSMITHKLINE-A0942309A

PATIENT
  Age: 75 Year
  Sex: Female

DRUGS (21)
  1. NAPROXEN [Concomitant]
  2. VERAPAMIL EXTENDED-RELEASE [Concomitant]
  3. VENTOLIN HFA [Concomitant]
  4. UNKNOWN MEDICATION [Concomitant]
     Indication: RESTLESS LEGS SYNDROME
  5. GABAPENTIN [Concomitant]
  6. STOOL SOFTENER [Concomitant]
  7. LASIX [Concomitant]
  8. AMBIEN [Concomitant]
  9. ADVAIR DISKUS 100/50 [Suspect]
     Indication: CHRONIC OBSTRUCTIVE PULMONARY DISEASE
     Dosage: 1PUFF TWICE PER DAY
     Route: 055
     Dates: start: 20060801
  10. OMEPRAZOLE [Concomitant]
  11. ALBUTEROL [Concomitant]
  12. UNKNOWN MEDICATION [Concomitant]
  13. LIQUEMINE [Concomitant]
  14. LACTULOSE [Concomitant]
  15. POTASSIUM [Concomitant]
  16. ROBAXIN [Concomitant]
  17. DUROLAX [Concomitant]
  18. VICODIN [Concomitant]
  19. ESTRADIOL [Concomitant]
  20. MEDROXYPROGESTERONE [Concomitant]
  21. SERTRALINE HYDROCHLORIDE [Concomitant]

REACTIONS (6)
  - PRODUCT QUALITY ISSUE [None]
  - MUSCLE STRAIN [None]
  - DYSPNOEA [None]
  - BACK PAIN [None]
  - DRUG INEFFECTIVE [None]
  - CONSTIPATION [None]
